FAERS Safety Report 23769070 (Version 1)
Quarter: 2024Q2

REPORT INFORMATION
  Report Type: Spontaneous
  Country: CN (occurrence: None)
  Receive Date: 20240422
  Receipt Date: 20240422
  Transmission Date: 20240716
  Serious: Yes (Other)
  Sender: FDA-Public Use
  Company Number: CN-ROCHE-3545980

PATIENT
  Age: 75 Year
  Sex: Female
  Weight: 68 kg

DRUGS (2)
  1. GAZYVA [Suspect]
     Active Substance: OBINUTUZUMAB
     Indication: Follicular lymphoma
     Dosage: INJECTION
     Route: 041
     Dates: start: 20240319, end: 20240319
  2. SODIUM CHLORIDE [Concomitant]
     Active Substance: SODIUM CHLORIDE
     Route: 041
     Dates: start: 20240319, end: 20240319

REACTIONS (5)
  - Blood pressure increased [Recovering/Resolving]
  - Procalcitonin increased [Recovering/Resolving]
  - Pyrexia [Recovering/Resolving]
  - Temperature intolerance [Recovering/Resolving]
  - Chills [Recovering/Resolving]

NARRATIVE: CASE EVENT DATE: 20240319
